FAERS Safety Report 7514614-3 (Version None)
Quarter: 2011Q2

REPORT INFORMATION
  Report Type: 
  Country: None (occurrence: None)
  Receive Date: 20110601
  Receipt Date: 20110523
  Transmission Date: 20111010
  Serious: Yes (Other)
  Sender: FDA-Public Use
  Company Number: US-JNJFOC-20110500785

PATIENT
  Sex: Male
  Weight: 117.94 kg

DRUGS (11)
  1. ASPIRIN [Concomitant]
     Indication: PROPHYLAXIS
     Route: 048
  2. PREGABALIN [Concomitant]
     Indication: NEUROPATHY PERIPHERAL
     Route: 065
  3. TERAZOSIN HCL [Concomitant]
     Indication: PROSTATIC DISORDER
     Dosage: NIGHT
     Route: 048
  4. VENLAFAXINE [Concomitant]
     Indication: DEPRESSION
     Route: 048
  5. FENTANYL CITRATE [Suspect]
     Indication: BACK PAIN
     Route: 062
  6. FENTANYL CITRATE [Suspect]
     Indication: BACK PAIN
     Route: 062
     Dates: start: 20051201
  7. OMEZ [Concomitant]
     Indication: GASTRIC DISORDER
     Dosage: AS NEEDED
     Route: 048
  8. FENTANYL-100 [Suspect]
     Indication: BACK PAIN
     Dosage: NDC 0781-7242-55
     Route: 062
  9. FISH OIL [Concomitant]
     Indication: PROPHYLAXIS
     Route: 048
  10. DOCUSATE [Concomitant]
     Indication: GASTROINTESTINAL DISORDER
     Route: 048
  11. VITAMIN D [Concomitant]
     Indication: PROPHYLAXIS
     Dosage: 100 UNITS DAILY
     Route: 048

REACTIONS (9)
  - WEIGHT DECREASED [None]
  - WRONG TECHNIQUE IN DRUG USAGE PROCESS [None]
  - PRODUCT ADHESION ISSUE [None]
  - SUICIDE ATTEMPT [None]
  - WITHDRAWAL SYNDROME [None]
  - MENTAL DISORDER [None]
  - INAPPROPRIATE SCHEDULE OF DRUG ADMINISTRATION [None]
  - PAIN [None]
  - FEELING HOT [None]
